FAERS Safety Report 13329717 (Version 2)
Quarter: 2017Q1

REPORT INFORMATION
  Report Type: Spontaneous
  Country: US (occurrence: US)
  Receive Date: 20170313
  Receipt Date: 20170313
  Transmission Date: 20170428
  Serious: Yes (Other)
  Sender: FDA-Public Use
  Company Number: US-JNJCP-30000373793

PATIENT
  Sex: Female

DRUGS (2)
  1. AVEENO ACTIVE NATURAL POSITIVELY RADIANT DAILY MOISTURIZER SUNSCREEN BROAD SPF15 [Suspect]
     Active Substance: AVOBENZONE\OCTINOXATE\OCTISALATE
     Indication: DRY SKIN PROPHYLAXIS
     Dosage: DAILY
     Route: 061
  2. UNSPECIFIED MAKEUP [Concomitant]
     Active Substance: UNSPECIFIED INGREDIENT
     Route: 061

REACTIONS (1)
  - Skin cancer [Not Recovered/Not Resolved]
